FAERS Safety Report 7469482-5 (Version None)
Quarter: 2011Q2

REPORT INFORMATION
  Report Type: 
  Country: None (occurrence: None)
  Receive Date: 20110510
  Receipt Date: 20110426
  Transmission Date: 20111010
  Serious: Yes (Hospitalization, Other)
  Sender: FDA-Public Use
  Company Number: US-JNJFOC-20110310069

PATIENT
  Sex: Female
  Weight: 68.95 kg

DRUGS (5)
  1. REMICADE [Suspect]
     Route: 042
  2. COLACE [Concomitant]
  3. REMICADE [Suspect]
     Indication: RHEUMATOID ARTHRITIS
     Route: 042
  4. REMICADE [Suspect]
     Dosage: 4.5 MG/KG
     Route: 042
  5. SOLU-MEDROL [Concomitant]

REACTIONS (3)
  - PERICARDIAL EFFUSION [None]
  - DIFFUSE LARGE B-CELL LYMPHOMA STAGE IV [None]
  - PLEURAL EFFUSION [None]
